FAERS Safety Report 13997132 (Version 1)
Quarter: 2017Q3

REPORT INFORMATION
  Report Type: Spontaneous
  Country: JP (occurrence: JP)
  Receive Date: 20170921
  Receipt Date: 20170921
  Transmission Date: 20171128
  Serious: Yes (Hospitalization)
  Sender: FDA-Public Use
  Company Number: JP-TEVA-807074ROM

PATIENT
  Age: 78 Year
  Sex: Male

DRUGS (2)
  1. CILOSTAZOL. [Suspect]
     Active Substance: CILOSTAZOL
     Indication: LACUNAR INFARCTION
     Route: 048
  2. APIXABAN [Suspect]
     Active Substance: APIXABAN
     Indication: LACUNAR INFARCTION
     Route: 048

REACTIONS (2)
  - Haematoma [Recovered/Resolved]
  - Carpal tunnel syndrome [Recovered/Resolved]
